FAERS Safety Report 6275113-2 (Version None)
Quarter: 2009Q3

REPORT INFORMATION
  Report Type: 
  Country: None (occurrence: None)
  Receive Date: 20090721
  Receipt Date: 20090716
  Transmission Date: 20100115
  Serious: Yes (Death, Hospitalization, Other)
  Sender: FDA-Public Use
  Company Number: PHHY2009JP28215

PATIENT
  Age: 55 Year
  Sex: Female

DRUGS (5)
  1. NEORAL [Suspect]
     Indication: RENAL TRANSPLANT
     Dosage: UNK
  2. SIMULECT [Suspect]
     Indication: RENAL TRANSPLANT
     Dosage: 20 MG
  3. CELLCEPT [Concomitant]
     Indication: RENAL TRANSPLANT
  4. TACROLIMUS [Concomitant]
     Indication: RENAL TRANSPLANT
     Dosage: UNK
  5. STEROIDS NOS [Concomitant]
     Indication: RENAL TRANSPLANT
     Dosage: UNK

REACTIONS (11)
  - ASCITES [None]
  - GENERAL PHYSICAL HEALTH DETERIORATION [None]
  - HEPATIC FAILURE [None]
  - HEPATIC FUNCTION ABNORMAL [None]
  - HEPATITIS C [None]
  - KIDNEY TRANSPLANT REJECTION [None]
  - REMOVAL OF RENAL TRANSPLANT [None]
  - RENAL FAILURE [None]
  - SEPSIS [None]
  - SEROCONVERSION TEST POSITIVE [None]
  - WOUND INFECTION [None]
